FAERS Safety Report 4972364-1 (Version None)
Quarter: 2006Q2

REPORT INFORMATION
  Report Type: 
  Country: None (occurrence: None)
  Receive Date: 20060413
  Receipt Date: 20051006
  Transmission Date: 20061013
  Serious: Yes (Hospitalization)
  Sender: FDA-Public Use
  Company Number: US-MERCK-0510USA05768

PATIENT
  Age: 78 Year
  Sex: Female
  Weight: 71 kg

DRUGS (9)
  1. VIOXX [Suspect]
     Indication: ARTHRALGIA
     Route: 048
     Dates: start: 20001114, end: 20040101
  2. VIOXX [Suspect]
     Indication: OSTEOARTHRITIS
     Route: 048
     Dates: start: 20001114, end: 20040101
  3. ATENOLOL [Concomitant]
     Route: 048
  4. AVAPRO [Concomitant]
     Route: 048
  5. ECOTRIN [Concomitant]
     Route: 048
  6. PROTONIX [Concomitant]
     Route: 048
  7. VITAMIN A [Concomitant]
     Route: 065
  8. AZOPT DROPS [Concomitant]
     Route: 065
  9. TOPROL-XL [Concomitant]
     Route: 048

REACTIONS (15)
  - ANGINA PECTORIS [None]
  - ANXIETY [None]
  - BRADYCARDIA [None]
  - BREAST CANCER [None]
  - CAROTID ARTERY DISEASE [None]
  - CATARACT [None]
  - HYPERTENSION [None]
  - INJURY [None]
  - ISCHAEMIC STROKE [None]
  - NERVOUS SYSTEM DISORDER [None]
  - ONYCHOMYCOSIS [None]
  - PAIN [None]
  - SINUS BRADYCARDIA [None]
  - TRANSIENT ISCHAEMIC ATTACK [None]
  - UPPER RESPIRATORY TRACT INFECTION [None]
